FAERS Safety Report 5119459-X (Version None)
Quarter: 2006Q3

REPORT INFORMATION
  Report Type: 
  Country: None (occurrence: None)
  Receive Date: 20060929
  Receipt Date: 20060920
  Transmission Date: 20061208
  Serious: Yes (Other)
  Sender: FDA-Public Use
  Company Number: 2006105652

PATIENT
  Sex: Male

DRUGS (2)
  1. CHANTIX [Suspect]
  2. CORTICOSTEROID NOS (CORTICOSTEROID NOS) [Suspect]

REACTIONS (5)
  - AGITATION [None]
  - DISTURBANCE IN ATTENTION [None]
  - NERVOUSNESS [None]
  - PSYCHOMOTOR HYPERACTIVITY [None]
  - TREMOR [None]
